FAERS Safety Report 6649993-2 (Version None)
Quarter: 2010Q1

REPORT INFORMATION
  Report Type: 
  Country: None (occurrence: None)
  Receive Date: 20100324
  Receipt Date: 20100324
  Transmission Date: 20100710
  Serious: No
  Sender: FDA-Public Use
  Company Number: None

PATIENT
  Sex: Male
  Weight: 69.8539 kg

DRUGS (2)
  1. NORTRIPTYLINE HCL [Suspect]
     Indication: ANXIETY
     Dosage: 25MG. DAILY MOUTH
     Route: 048
     Dates: start: 20100215, end: 20100318
  2. NORTRIPTYLINE HCL [Suspect]
     Indication: DEPRESSION
     Dosage: 25MG. DAILY MOUTH
     Route: 048
     Dates: start: 20100215, end: 20100318

REACTIONS (1)
  - LACRIMATION INCREASED [None]
